FAERS Safety Report 4940929-9 (Version None)
Quarter: 2006Q1

REPORT INFORMATION
  Report Type: 
  Country: None (occurrence: None)
  Receive Date: 20060313
  Receipt Date: 20060302
  Transmission Date: 20060701
  Serious: Yes (Death)
  Sender: FDA-Public Use
  Company Number: US-JNJFOC-20060300862

PATIENT
  Sex: Female
  Weight: 126.1 kg

DRUGS (17)
  1. ULTRAM [Suspect]
     Indication: PAIN
  2. K-DUR 10 [Concomitant]
  3. ZAROXOLYN [Concomitant]
  4. ASPIRIN [Concomitant]
  5. RELAFEN [Concomitant]
  6. AMITRIPTYLINE HCL [Concomitant]
  7. NITROGLYCERIN [Concomitant]
     Route: 062
  8. ZERTEC [Concomitant]
  9. TOPROL-XL [Concomitant]
  10. ALBUTEROL [Concomitant]
  11. DEMEDEX [Concomitant]
  12. NITROGLYCERIN [Concomitant]
     Route: 055
  13. ACTOS [Concomitant]
  14. PRILOSEC [Concomitant]
  15. HUMULIN 70/30 [Concomitant]
  16. HUMULIN 70/30 [Concomitant]
  17. LOTENSIN [Concomitant]

REACTIONS (1)
  - SUDDEN CARDIAC DEATH [None]
